FAERS Safety Report 10430629 (Version 1)
Quarter: 2014Q3

REPORT INFORMATION
  Report Type: Spontaneous
  Country: US (occurrence: None)
  Receive Date: 20140903
  Receipt Date: 20140903
  Transmission Date: 20150326
  Serious: No
  Sender: FDA-Public Use
  Company Number: None

PATIENT
  Age: 60 Year
  Sex: Female

DRUGS (2)
  1. ZOLPIDEM ER [Suspect]
     Active Substance: ZOLPIDEM\ZOLPIDEM TARTRATE
     Indication: INSOMNIA
     Dosage: 1 TABLET, QHS/BEDTIME, ORAL
     Route: 048
     Dates: start: 20140707, end: 20140804
  2. ZOLPIDEM ER [Suspect]
     Active Substance: ZOLPIDEM\ZOLPIDEM TARTRATE
     Indication: INSOMNIA
     Dosage: 1 TABLET, QHS/BEDTIME, ORAL
     Route: 048
     Dates: start: 20140805, end: 20140828

REACTIONS (4)
  - Middle insomnia [None]
  - Therapeutic response changed [None]
  - Drug ineffective [None]
  - Product substitution issue [None]

NARRATIVE: CASE EVENT DATE: 20140707
